FAERS Safety Report 11438818 (Version 1)
Quarter: 2015Q3

REPORT INFORMATION
  Report Type: Spontaneous
  Country: US (occurrence: US)
  Receive Date: 20150901
  Receipt Date: 20150901
  Transmission Date: 20151125
  Serious: No
  Sender: FDA-Public Use
  Company Number: US-ROCHE-1091994

PATIENT
  Sex: Female

DRUGS (3)
  1. COPEGUS [Suspect]
     Active Substance: RIBAVIRIN
     Indication: CHRONIC HEPATITIS C
     Dosage: DIVIDED DOSES: 600/400
     Route: 048
     Dates: start: 20120715
  2. PEGASYS [Suspect]
     Active Substance: PEGINTERFERON ALFA-2A
     Indication: CHRONIC HEPATITIS C
     Route: 058
     Dates: start: 20120715
  3. INCIVEK [Suspect]
     Active Substance: TELAPREVIR
     Indication: CHRONIC HEPATITIS C
     Route: 065
     Dates: start: 20120715

REACTIONS (8)
  - Hyperhidrosis [Unknown]
  - Injection site pruritus [Unknown]
  - Nausea [Unknown]
  - Injection site erythema [Unknown]
  - Pruritus [Unknown]
  - Rash [Unknown]
  - Abdominal pain [Unknown]
  - Injection site reaction [Unknown]
